FAERS Safety Report 22398986 (Version 1)
Quarter: 2023Q2

REPORT INFORMATION
  Report Type: Spontaneous
  Country: US (occurrence: US)
  Receive Date: 20230602
  Receipt Date: 20230602
  Transmission Date: 20230721
  Serious: Yes (Other)
  Sender: FDA-Public Use
  Company Number: US-MYLANLABS-2023M1056494

PATIENT
  Age: 20 Year
  Sex: Male

DRUGS (1)
  1. ADENOSINE [Suspect]
     Active Substance: ADENOSINE
     Indication: Ventricular tachycardia
     Dosage: UNK
     Route: 065

REACTIONS (1)
  - Drug ineffective [Unknown]
